FAERS Safety Report 17084010 (Version 2)
Quarter: 2021Q1

REPORT INFORMATION
  Report Type: Spontaneous
  Country: SA (occurrence: SA)
  Receive Date: 20191127
  Receipt Date: 20210304
  Transmission Date: 20210419
  Serious: Yes (Death, Other)
  Sender: FDA-Public Use
  Company Number: SA-AMGEN-SAUSP2019195143

PATIENT

DRUGS (1)
  1. FILGRASTIM [Suspect]
     Active Substance: FILGRASTIM
     Indication: NEUTROPHIL COUNT DECREASED
     Dosage: 5 MICROGRAM/KILOGRAM FOR 3 CONSECUTIVE DAYS
     Route: 065

REACTIONS (5)
  - Malignant neoplasm progression [Fatal]
  - Mucosal inflammation [Unknown]
  - Myelodysplastic syndrome [Fatal]
  - Therapeutic product effect incomplete [Unknown]
  - Acute leukaemia [Fatal]
